FAERS Safety Report 9308472 (Version 6)
Quarter: 2014Q2

REPORT INFORMATION
  Report Type: Spontaneous
  Country: US (occurrence: US)
  Receive Date: 20130524
  Receipt Date: 20140429
  Transmission Date: 20141212
  Serious: Yes (Hospitalization, Other)
  Sender: FDA-Public Use
  Company Number: US-009507513-1305USA012401

PATIENT
  Sex: Female
  Weight: 69.39 kg

DRUGS (6)
  1. FOSAMAX [Suspect]
     Indication: OSTEOPOROSIS
     Dosage: 70 MG, QW
     Route: 048
     Dates: start: 20050920, end: 20051104
  2. ALENDRONATE SODIUM [Suspect]
     Indication: OSTEOPOROSIS
     Dosage: 70 MG, QW
     Route: 048
     Dates: start: 20060216, end: 20080107
  3. BONIVA [Suspect]
     Indication: OSTEOPOROSIS
     Dosage: 150 MG, UNK
     Route: 048
     Dates: start: 20080202, end: 20090330
  4. IBANDRONATE SODIUM [Suspect]
     Indication: OSTEOPOROSIS
     Dosage: 150 MG, UNK
     Route: 048
     Dates: start: 20090615, end: 20100322
  5. CALCIUM (UNSPECIFIED) [Concomitant]
     Dosage: 1 DF, BID
     Dates: start: 2001
  6. VITAMIN D (UNSPECIFIED) [Concomitant]
     Dosage: 1 DF, BID
     Dates: start: 2001

REACTIONS (26)
  - Femur fracture [Recovered/Resolved]
  - Intramedullary rod insertion [Unknown]
  - Femur fracture [Unknown]
  - Intramedullary rod insertion [Unknown]
  - Femur fracture [Recovering/Resolving]
  - Intramedullary rod insertion [Unknown]
  - Low turnover osteopathy [Unknown]
  - Fracture delayed union [Recovering/Resolving]
  - Body height decreased [Unknown]
  - Hysterectomy [Unknown]
  - Osteoarthritis [Unknown]
  - Osteoarthritis [Unknown]
  - Urinary tract infection [Unknown]
  - Ankle operation [Unknown]
  - Scoliosis [Unknown]
  - Spinal osteoarthritis [Unknown]
  - Device failure [Unknown]
  - Fracture nonunion [Unknown]
  - Arthritis [Unknown]
  - Tonsillectomy [Unknown]
  - Abdominal operation [Unknown]
  - Back pain [Unknown]
  - Arthralgia [Unknown]
  - Drug ineffective [Unknown]
  - Neck pain [Unknown]
  - Musculoskeletal pain [Unknown]
